FAERS Safety Report 7593263-5 (Version None)
Quarter: 2011Q3

REPORT INFORMATION
  Report Type: 
  Country: None (occurrence: None)
  Receive Date: 20110706
  Receipt Date: 20110620
  Transmission Date: 20111222
  Serious: No
  Sender: FDA-Public Use
  Company Number: US-B.I. PHARMACEUTICALS,INC./RIDGEFIELD-2011-BP-15891BP

PATIENT
  Age: 72 Year
  Sex: Female

DRUGS (11)
  1. IRON SUPPLEMENT [Concomitant]
     Indication: CONSTIPATION
     Dosage: 325 MG
  2. PRADAXA [Suspect]
     Indication: ATRIAL FIBRILLATION
     Dosage: 300 MG
     Route: 048
     Dates: start: 20110201
  3. VIT C [Concomitant]
     Indication: SUPPLEMENTATION THERAPY
     Dosage: 400 MG
     Route: 048
  4. VIT E [Concomitant]
     Indication: SUPPLEMENTATION THERAPY
     Dosage: 200 MG
     Route: 048
  5. DULCOLAX [Concomitant]
     Indication: CONSTIPATION
     Route: 048
  6. COREG [Concomitant]
     Indication: CARDIAC FAILURE
     Route: 048
  7. FAMOTIDINE [Concomitant]
     Indication: GASTROOESOPHAGEAL REFLUX DISEASE
     Dosage: 20 MG
     Route: 048
  8. VIT D [Concomitant]
     Indication: SUPPLEMENTATION THERAPY
     Route: 048
  9. SUCRALFATE [Concomitant]
     Indication: GASTROOESOPHAGEAL REFLUX DISEASE
     Route: 048
  10. SOTALOL HCL [Concomitant]
     Indication: ATRIAL FIBRILLATION
     Dosage: 80 MG
     Route: 048
  11. FOLIC ACID [Concomitant]
     Indication: ANAEMIA
     Dosage: 1 MG
     Route: 048

REACTIONS (2)
  - BLOOD URINE PRESENT [None]
  - ARTHRALGIA [None]
